FAERS Safety Report 9197690 (Version 1)
Quarter: 2013Q1

REPORT INFORMATION
  Report Type: Spontaneous
  Country: US (occurrence: US)
  Receive Date: 20130328
  Receipt Date: 20130328
  Transmission Date: 20140127
  Serious: No
  Sender: FDA-Public Use
  Company Number: US-GALDERMA-US12415599

PATIENT
  Sex: Female
  Weight: 47 kg

DRUGS (3)
  1. CLOBEX [Suspect]
     Indication: PSORIASIS
     Route: 061
  2. CLOBEX [Suspect]
     Indication: PSORIASIS
     Route: 061
  3. CETAPHIL MOISTURIZING LOTION [Concomitant]
     Route: 061

REACTIONS (4)
  - Drug ineffective [Not Recovered/Not Resolved]
  - Incorrect drug administration duration [Not Recovered/Not Resolved]
  - Underdose [Not Recovered/Not Resolved]
  - Economic problem [None]
